FAERS Safety Report 19148552 (Version 2)
Quarter: 2021Q2

REPORT INFORMATION
  Report Type: Report from Study
  Country: None (occurrence: CO)
  Receive Date: 20210416
  Receipt Date: 20210519
  Transmission Date: 20210717
  Serious: Yes (Death, Hospitalization, Other)
  Sender: FDA-Public Use
  Company Number: CO-ABBVIE-21K-036-3863954-00

PATIENT
  Age: 39 Year
  Sex: Male
  Weight: 57 kg

DRUGS (2)
  1. ZEMPLAR [Suspect]
     Active Substance: PARICALCITOL
     Indication: HYPERPARATHYROIDISM SECONDARY
     Route: 048
     Dates: start: 20200213, end: 20210202
  2. ZEMPLAR [Suspect]
     Active Substance: PARICALCITOL
     Indication: CHRONIC KIDNEY DISEASE

REACTIONS (3)
  - Vein disorder [Recovering/Resolving]
  - Cardio-respiratory arrest [Fatal]
  - Device related infection [Recovering/Resolving]

NARRATIVE: CASE EVENT DATE: 202104
